FAERS Safety Report 9553459 (Version 1)
Quarter: 2013Q3

REPORT INFORMATION
  Report Type: Spontaneous
  Country: FR (occurrence: FR)
  Receive Date: 20130925
  Receipt Date: 20130925
  Transmission Date: 20140515
  Serious: Yes (Other)
  Sender: FDA-Public Use
  Company Number: FR-BAUSCH-BL-2013-005062

PATIENT
  Age: 55 Year
  Sex: Female

DRUGS (3)
  1. CARTEOL LP 2% COLLYRE A LIBERATION PROLONGEE [Suspect]
     Indication: GLAUCOMA
     Route: 047
     Dates: start: 20100201, end: 201110
  2. TOBREX [Suspect]
     Indication: ULCERATIVE KERATITIS
     Route: 047
     Dates: start: 201304, end: 201304
  3. EURONAC [Suspect]
     Indication: ULCERATIVE KERATITIS
     Route: 047
     Dates: start: 201304, end: 201304

REACTIONS (18)
  - Alopecia totalis [Recovering/Resolving]
  - Anti-thyroid antibody [Unknown]
  - Chest pain [Unknown]
  - Hyperhidrosis [Unknown]
  - Nail disorder [Unknown]
  - Dry mouth [Unknown]
  - Vertigo [Unknown]
  - Abdominal pain upper [Unknown]
  - Asthenia [Unknown]
  - Dry eye [Unknown]
  - Eye irritation [Unknown]
  - Palpitations [Unknown]
  - Dyspnoea [Unknown]
  - Muscular weakness [Unknown]
  - Insomnia [Unknown]
  - Nightmare [Unknown]
  - Cough [Unknown]
  - Rash erythematous [Unknown]
